FAERS Safety Report 9514827 (Version 2)
Quarter: 2014Q1

REPORT INFORMATION
  Report Type: Spontaneous
  Country: US (occurrence: None)
  Receive Date: 20130305
  Receipt Date: 20140306
  Transmission Date: 20141002
  Serious: Yes (Hospitalization, Other)
  Sender: FDA-Public Use
  Company Number: 163-21880-12112938

PATIENT
  Age: 69 Year
  Sex: Male

DRUGS (12)
  1. REVLIMID [Suspect]
     Indication: PLASMA CELL MYELOMA
     Dosage: 10 MG, 15 IN 15 D , PO
     Route: 048
     Dates: start: 20110422
  2. ADVAIR DISKUS (SERETIDE MITE) (INHALANT) [Concomitant]
  3. ALLOPURINOL (ALLOPURINOL) (300 MILLIGRAM, TABLET) [Concomitant]
  4. CALCIUM 600 +VITAMIN D (OS-CAL) (TABLETS) [Concomitant]
  5. FLUTICASONE PROPIONATE (FLUTICASONE PROPIONATE) (AEROSOL FOR INHALATION) [Concomitant]
  6. FOLIC ACID (FOLIC ACID) (0.8 MILLIGRAM, TABLETS) [Concomitant]
  7. LIPITOR (ATORVASTATIN) (20 MILLIGRAM, TABLETS) [Concomitant]
  8. MULTIVITAMINS (MULTIVITAMINS) (TABLETS) [Concomitant]
  9. NUVIGIL (ARMODAFINIL) (TABLETS) [Concomitant]
  10. OMEPRAZOLE (OMEPRAZOLE) (20 MILLIGRAM, ENTERIC-COATED TABLET) [Concomitant]
  11. WARFARIN SODIUM (WARFARIN SODIUM) (5 MILLIGRAM, TABLETS) [Concomitant]
  12. PAMIDRONATE (PAMIDRONATE DISODIUM) (UNKNOWN) [Concomitant]

REACTIONS (1)
  - Cough [None]
